FAERS Safety Report 8210689-7 (Version None)
Quarter: 2012Q1

REPORT INFORMATION
  Report Type: 
  Country: None (occurrence: None)
  Receive Date: 20120314
  Receipt Date: 20120305
  Transmission Date: 20120608
  Serious: Yes (Other)
  Sender: FDA-Public Use
  Company Number: US-ASTRAZENECA-2012SE09970

PATIENT
  Age: 46 Year
  Sex: Male
  Weight: 70.3 kg

DRUGS (7)
  1. SEROQUEL [Suspect]
     Indication: SLEEP DISORDER
     Route: 048
     Dates: start: 20070101
  2. SEROQUEL [Suspect]
     Indication: BIPOLAR DISORDER
     Route: 048
     Dates: start: 20070101
  3. SEROQUEL [Suspect]
     Indication: ANXIETY
     Route: 048
     Dates: start: 20070101
  4. SENNA [Concomitant]
     Indication: GASTRIC DISORDER
  5. SENNA [Concomitant]
     Indication: CONSTIPATION
  6. OXYCODONE HCL [Concomitant]
     Indication: PAIN
  7. CLONEPINE [Concomitant]
     Indication: ANXIETY

REACTIONS (2)
  - PAIN [None]
  - SPINAL FRACTURE [None]
